FAERS Safety Report 4996965-X (Version None)
Quarter: 2006Q2

REPORT INFORMATION
  Report Type: 
  Country: None (occurrence: None)
  Receive Date: 20060508
  Receipt Date: 20060508
  Transmission Date: 20061013
  Serious: No
  Sender: FDA-Public Use
  Company Number: None

PATIENT
  Age: 57 Year
  Sex: Female

DRUGS (1)
  1. MINOCYCLINE HCL [Suspect]
     Indication: GRANULOMA ANNULARE
     Dosage: TAKE 1 CAPSULE TWICE A DAY WITH FOOD
     Dates: start: 20060201

REACTIONS (2)
  - CONDITION AGGRAVATED [None]
  - GRANULOMA ANNULARE [None]
